FAERS Safety Report 6137330-1 (Version None)
Quarter: 2009Q1

REPORT INFORMATION
  Report Type: 
  Country: None (occurrence: None)
  Receive Date: 20090330
  Receipt Date: 20090327
  Transmission Date: 20090719
  Serious: Yes (Death, Other)
  Sender: FDA-Public Use
  Company Number: US-ROXANE LABORATORIES, INC.-2009-RO-00264RO

PATIENT
  Sex: Male
  Weight: 86 kg

DRUGS (23)
  1. METHADONE [Suspect]
     Indication: BACK PAIN
  2. METHADONE [Suspect]
     Indication: NECK PAIN
     Dosage: 40MG
     Dates: start: 20050601
  3. XANAX [Suspect]
  4. VALIUM [Suspect]
  5. OXYCODONE HCL [Concomitant]
  6. OXYCODONE HCL [Concomitant]
  7. OXYCONTIN [Concomitant]
  8. OXYCONTIN [Concomitant]
  9. OXYCONTIN [Concomitant]
  10. OXYCONTIN [Concomitant]
  11. CARISOPRODOL [Concomitant]
  12. NEXIUM [Concomitant]
  13. LYRICA [Concomitant]
  14. LUNESTA [Concomitant]
  15. LORAZEPAM [Concomitant]
  16. ACETAMINOPHEN AND HYDROCODONE BITARTRATE [Concomitant]
  17. SYMBYAX [Concomitant]
  18. CYMBALTA [Concomitant]
  19. TOPAMAX [Concomitant]
  20. ROZEREM [Concomitant]
  21. ALPRAZOLAM [Concomitant]
  22. DIAZEPAM [Concomitant]
  23. HYDROCODONE BITARTRATE + ACETAMINOPHEN [Concomitant]

REACTIONS (3)
  - CORONARY ARTERY DISEASE [None]
  - PULMONARY CONGESTION [None]
  - THERAPEUTIC AGENT TOXICITY [None]
